FAERS Safety Report 5340185-6 (Version None)
Quarter: 2007Q2

REPORT INFORMATION
  Report Type: 
  Country: None (occurrence: None)
  Receive Date: 20070531
  Receipt Date: 20070529
  Transmission Date: 20071010
  Serious: Yes (Death, Hospitalization)
  Sender: FDA-Public Use
  Company Number: B0471148A

PATIENT
  Age: 6 Month
  Sex: Male
  Weight: 9 kg

DRUGS (5)
  1. ZIDOVUDINE [Suspect]
     Indication: HIV INFECTION
     Dosage: 95MG TWICE PER DAY
     Route: 048
     Dates: start: 20061127, end: 20070509
  2. LAMIVUDINE [Suspect]
     Indication: HIV INFECTION
     Dosage: 35MG TWICE PER DAY
     Route: 048
     Dates: start: 20061127, end: 20070509
  3. KALETRA [Suspect]
     Indication: HIV INFECTION
     Dosage: 1.5ML TWICE PER DAY
     Route: 048
     Dates: start: 20061127, end: 20070509
  4. COTRIMOXAZOLE [Concomitant]
  5. PREVNAR [Concomitant]
     Dates: start: 20061127

REACTIONS (11)
  - ANOREXIA [None]
  - COUGH [None]
  - GASTROENTERITIS [None]
  - HAEMATOCHEZIA [None]
  - HEPATIC FAILURE [None]
  - HEPATOSPLENOMEGALY [None]
  - HYPOGLYCAEMIA [None]
  - IRRITABILITY [None]
  - PNEUMONIA [None]
  - PYREXIA [None]
  - TACHYPNOEA [None]
